FAERS Safety Report 19162740 (Version 2)
Quarter: 2021Q3

REPORT INFORMATION
  Report Type: Report from Study
  Country: DE (occurrence: DE)
  Receive Date: 20210421
  Receipt Date: 20210802
  Transmission Date: 20211014
  Serious: Yes (Death, Hospitalization, Other)
  Sender: FDA-Public Use
  Company Number: NVSC2021DE070845

PATIENT
  Sex: Female
  Weight: 48 kg

DRUGS (4)
  1. KISQALI [Suspect]
     Active Substance: RIBOCICLIB
     Indication: BREAST CANCER METASTATIC
     Dosage: 600 MG, QD (REGIMEN 21 DAYS INTAKE, 7 DAYS PAUSE)
     Route: 048
     Dates: start: 20200624, end: 20200928
  2. KISQALI [Suspect]
     Active Substance: RIBOCICLIB
     Dosage: 600 MG (REGIMEN 21 DAYS INTAKE, 7 DAYS PAUSE)
     Route: 048
     Dates: start: 20201030, end: 20210204
  3. FULVESTRANT. [Suspect]
     Active Substance: FULVESTRANT
     Indication: BREAST CANCER METASTATIC
     Dosage: 500 MG, Q2W (DAILY DOSE)
     Route: 030
     Dates: start: 20200624, end: 20200928
  4. FULVESTRANT. [Suspect]
     Active Substance: FULVESTRANT
     Dosage: 250 MG, Q4W (DAILY DOSE)
     Route: 030
     Dates: start: 20201029, end: 20210221

REACTIONS (6)
  - Oedema [Recovered/Resolved]
  - COVID-19 [Recovering/Resolving]
  - Breast cancer metastatic [Fatal]
  - Malignant neoplasm progression [Fatal]
  - Metastases to central nervous system [Unknown]
  - Respiratory failure [Unknown]

NARRATIVE: CASE EVENT DATE: 20210221
